FAERS Safety Report 10269871 (Version 1)
Quarter: 2014Q2

REPORT INFORMATION
  Report Type: Spontaneous
  Country: US (occurrence: None)
  Receive Date: 20140627
  Receipt Date: 20140627
  Transmission Date: 20141212
  Serious: Yes (Other)
  Sender: FDA-Public Use
  Company Number: None

PATIENT
  Age: 53 Year
  Sex: Male
  Weight: 48.99 kg

DRUGS (3)
  1. OXCARBEZAPINE 300 MG GENERIC [Suspect]
     Indication: ANXIETY
     Dosage: 1 PILL
     Route: 048
     Dates: start: 20140522, end: 20140621
  2. OXCARBEZAPINE 300 MG GENERIC [Suspect]
     Indication: DEPRESSION
     Dosage: 1 PILL
     Route: 048
     Dates: start: 20140522, end: 20140621
  3. OXCARBEZAPINE 300 MG GENERIC [Suspect]
     Indication: INSOMNIA
     Dosage: 1 PILL
     Route: 048
     Dates: start: 20140522, end: 20140621

REACTIONS (2)
  - Oedema peripheral [None]
  - Oedema peripheral [None]
